FAERS Safety Report 8007025-8 (Version None)
Quarter: 2011Q4

REPORT INFORMATION
  Report Type: 
  Country: None (occurrence: None)
  Receive Date: 20111227
  Receipt Date: 20111216
  Transmission Date: 20120403
  Serious: Yes (Hospitalization)
  Sender: FDA-Public Use
  Company Number: JP-BRISTOL-MYERS SQUIBB COMPANY-16303067

PATIENT
  Age: 63 Year
  Sex: Male

DRUGS (1)
  1. HYDREA [Suspect]

REACTIONS (2)
  - HAEMORRHAGE [None]
  - LACERATION [None]
